FAERS Safety Report 18120512 (Version 2)
Quarter: 2020Q3

REPORT INFORMATION
  Report Type: Spontaneous
  Country: CH (occurrence: CH)
  Receive Date: 20200806
  Receipt Date: 20200812
  Transmission Date: 20201103
  Serious: Yes (Hospitalization, Other)
  Sender: FDA-Public Use
  Company Number: CH-BRISTOL-MYERS SQUIBB COMPANY-BMS-2020-056799

PATIENT
  Age: 78 Year
  Sex: Male

DRUGS (4)
  1. OPDIVO [Suspect]
     Active Substance: NIVOLUMAB
     Indication: MALIGNANT MELANOMA
     Dosage: 255 MILLIGRAM (ADMINISTRATION OVER 30MIN), EVERY 3 WEEKS
     Route: 042
     Dates: start: 20190809, end: 20191025
  2. OPDIVO [Suspect]
     Active Substance: NIVOLUMAB
     Dosage: MAINTENANCE THERAPY WERE GIVEN IN SUCCESSION
     Route: 065
  3. XARELTO [Concomitant]
     Active Substance: RIVAROXABAN
     Indication: PULMONARY EMBOLISM
     Dosage: 20 MILLIGRAM
     Route: 065
  4. YERVOY [Suspect]
     Active Substance: IPILIMUMAB
     Indication: MALIGNANT MELANOMA
     Dosage: 85 MG, (ADMINISTRATION OVER 30MIN), EVERY 3 WEEKS
     Route: 042
     Dates: start: 20190809, end: 20191025

REACTIONS (5)
  - Epidermolysis [Unknown]
  - Off label use [Unknown]
  - Acute kidney injury [Unknown]
  - Immune-mediated pneumonitis [Recovered/Resolved]
  - Dermatitis exfoliative generalised [Unknown]

NARRATIVE: CASE EVENT DATE: 20190818
